FAERS Safety Report 19860786 (Version 1)
Quarter: 2021Q3

REPORT INFORMATION
  Report Type: Spontaneous
  Country: US (occurrence: US)
  Receive Date: 20210918
  Receipt Date: 20210918
  Transmission Date: 20211014
  Serious: Yes (Hospitalization)
  Sender: FDA-Public Use
  Company Number: None

PATIENT
  Sex: Male
  Weight: 13.2 kg

DRUGS (4)
  1. CARBOPLATIN. [Suspect]
     Active Substance: CARBOPLATIN
     Dates: end: 20210611
  2. MELPHALAN. [Suspect]
     Active Substance: MELPHALAN
     Dates: end: 20210610
  3. ETOPOSIDE (VP?16) [Suspect]
     Active Substance: ETOPOSIDE
     Dates: end: 20210611
  4. G?CSF (FILGRASTIM, AMGEN) [Suspect]
     Active Substance: FILGRASTIM
     Dates: end: 20210615

REACTIONS (12)
  - Multiple organ dysfunction syndrome [None]
  - Endothelial dysfunction [None]
  - Idiopathic pneumonia syndrome [None]
  - Acute respiratory failure [None]
  - Pulmonary vascular disorder [None]
  - Renal replacement therapy [None]
  - Pneumonitis [None]
  - Renal failure [None]
  - Thrombotic microangiopathy [None]
  - Pneumonia [None]
  - Pulmonary oedema [None]
  - Hypertension [None]

NARRATIVE: CASE EVENT DATE: 20210818
